FAERS Safety Report 6348021-6 (Version None)
Quarter: 2009Q3

REPORT INFORMATION
  Report Type: 
  Country: None (occurrence: None)
  Receive Date: 20090908
  Receipt Date: 20090828
  Transmission Date: 20100115
  Serious: Yes (Other)
  Sender: FDA-Public Use
  Company Number: CHPA2009US17906

PATIENT
  Age: 73 Year
  Sex: Female
  Weight: 113.4 kg

DRUGS (2)
  1. EXCEDRIN (MIGRAINE) [Suspect]
     Indication: BACK PAIN
     Dosage: 2 DF, 1-2 TIMES PER DAY PRN, ORAL
     Route: 048
  2. EXCEDRIN TENSION HEADACHE (CAFFEINE, PARACETAMOL) COATED TABLET [Concomitant]

REACTIONS (3)
  - DIABETIC RETINOPATHY [None]
  - DRUG INEFFECTIVE [None]
  - EYE HAEMORRHAGE [None]
